FAERS Safety Report 20680749 (Version 1)
Quarter: 2022Q2

REPORT INFORMATION
  Report Type: Report from Study
  Country: US (occurrence: US)
  Receive Date: 20220406
  Receipt Date: 20220406
  Transmission Date: 20220721
  Serious: Yes (Other)
  Sender: FDA-Public Use
  Company Number: US-INSUD PHARMA-2203US01320

PATIENT

DRUGS (3)
  1. TESTOSTERONE [Suspect]
     Active Substance: TESTOSTERONE
     Indication: Transgender hormonal therapy
     Dosage: HAD BEEN TAKING INJECTIONS FOR 15 MONTHS
     Route: 030
  2. MINOCYCLINE [Suspect]
     Active Substance: MINOCYCLINE HYDROCHLORIDE
     Dosage: INCREASED TO 100 MG TWICE DAILY 3 MONTHS BEFORE PRESENTATION
  3. MINOCYCLINE [Suspect]
     Active Substance: MINOCYCLINE HYDROCHLORIDE
     Dosage: 50 MG TWICE DAILY FOR 9 MONTHS

REACTIONS (5)
  - Idiopathic intracranial hypertension [Unknown]
  - Papilloedema [Unknown]
  - Tinnitus [Unknown]
  - Visual impairment [Unknown]
  - Intracranial pressure increased [Unknown]
